FAERS Safety Report 6893115-X (Version None)
Quarter: 2010Q3

REPORT INFORMATION
  Report Type: 
  Country: None (occurrence: None)
  Receive Date: 20100731
  Receipt Date: 20090518
  Transmission Date: 20110219
  Serious: No
  Sender: FDA-Public Use
  Company Number: US-PFIZER INC-2003022957

PATIENT
  Sex: Female

DRUGS (13)
  1. GABAPENTIN [Suspect]
     Indication: MUSCLE SPASMS
     Dosage: UNK
     Dates: start: 20090101
  2. LIPITOR [Suspect]
     Indication: HYPERLIPIDAEMIA
     Dosage: UNK
     Route: 048
     Dates: start: 20020606, end: 20030410
  3. LIBRAX [Concomitant]
  4. DYAZIDE [Concomitant]
  5. DITROPAN [Concomitant]
  6. PROZAC [Concomitant]
  7. DILTIAZEM [Concomitant]
     Dosage: UNK
  8. ESTRADIOL [Concomitant]
  9. LEVOTHYROXINE SODIUM [Concomitant]
     Dosage: UNK
  10. QUININE [Concomitant]
  11. RANITIDINE [Concomitant]
  12. FISH OIL [Concomitant]
  13. ESTROGENS CONJUGATED [Concomitant]

REACTIONS (6)
  - ABDOMINAL PAIN [None]
  - DIVERTICULUM [None]
  - DIZZINESS [None]
  - MUSCLE SPASMS [None]
  - MYALGIA [None]
  - PAIN [None]
